FAERS Safety Report 5146920-4 (Version None)
Quarter: 2006Q4

REPORT INFORMATION
  Report Type: 
  Country: None (occurrence: None)
  Receive Date: 20061107
  Receipt Date: 20061107
  Transmission Date: 20070319
  Serious: Yes (Hospitalization)
  Sender: FDA-Public Use
  Company Number: None

PATIENT
  Sex: Female
  Weight: 60 kg

DRUGS (3)
  1. CARBOPLATIN [Suspect]
     Dosage: 678 MG
     Dates: end: 20061016
  2. TAXOL [Suspect]
     Dosage: 280 MG
     Dates: end: 20061016
  3. ZOFRAN [Concomitant]

REACTIONS (2)
  - NEUTROPHIL COUNT DECREASED [None]
  - PYREXIA [None]
